FAERS Safety Report 25286700 (Version 1)
Quarter: 2025Q2

REPORT INFORMATION
  Report Type: Spontaneous
  Country: GB (occurrence: GB)
  Receive Date: 20250509
  Receipt Date: 20250509
  Transmission Date: 20250716
  Serious: Yes (Other)
  Sender: MYLAN
  Company Number: GB-AstraZeneca-CH-00851517A

PATIENT
  Age: 87 Year
  Sex: Female
  Weight: 58 kg

DRUGS (2)
  1. APIXABAN [Suspect]
     Active Substance: APIXABAN
     Indication: Product used for unknown indication
  2. CALQUENCE [Suspect]
     Active Substance: ACALABRUTINIB
     Indication: Product used for unknown indication
     Dosage: 100 MILLIGRAM, BID
     Dates: start: 20240528

REACTIONS (4)
  - Muscle haemorrhage [Recovered/Resolved]
  - Thrombocytopenia [Unknown]
  - Oedema [Unknown]
  - Haematoma [Unknown]
